FAERS Safety Report 17442423 (Version 1)
Quarter: 2020Q1

REPORT INFORMATION
  Report Type: Report from Study
  Country: CA (occurrence: CA)
  Receive Date: 20200220
  Receipt Date: 20200220
  Transmission Date: 20200409
  Serious: Yes (Hospitalization)
  Sender: FDA-Public Use
  Company Number: CA-EISAI MEDICAL RESEARCH-EC-2019-057151

PATIENT
  Age: 63 Year
  Sex: Female

DRUGS (7)
  1. HYDROMORPHONE [Concomitant]
     Active Substance: HYDROMORPHONE
  2. LENVIMA [Suspect]
     Active Substance: LENVATINIB
     Indication: HEPATOCELLULAR CARCINOMA
     Route: 048
     Dates: start: 20190524, end: 201909
  3. ONDANSETRON [Concomitant]
     Active Substance: ONDANSETRON
  4. METFORMIN [Concomitant]
     Active Substance: METFORMIN HYDROCHLORIDE
  5. TINZAPARIN [Concomitant]
     Active Substance: TINZAPARIN
  6. INSULIN [Concomitant]
     Active Substance: INSULIN NOS
  7. TELMISARTAN. [Concomitant]
     Active Substance: TELMISARTAN

REACTIONS (4)
  - Nausea [Recovering/Resolving]
  - Protein albumin ratio [Unknown]
  - Seizure [Recovered/Resolved]
  - Dyspepsia [Recovering/Resolving]

NARRATIVE: CASE EVENT DATE: 20190529
